FAERS Safety Report 9825761 (Version 1)
Quarter: 2014Q1

REPORT INFORMATION
  Report Type: Spontaneous
  Country: US (occurrence: None)
  Receive Date: 20140116
  Receipt Date: 20140116
  Transmission Date: 20141002
  Serious: Yes (Life-Threatening)
  Sender: FDA-Public Use
  Company Number: None

PATIENT
  Age: 43 Year
  Sex: Male
  Weight: 140.16 kg

DRUGS (1)
  1. LEXAPRO OR ESCITALOPRAM [Suspect]
     Indication: DEPRESSION
     Dates: start: 20120113

REACTIONS (3)
  - Dizziness [None]
  - Nausea [None]
  - Drug ineffective [None]
